FAERS Safety Report 6533353-9 (Version None)
Quarter: 2010Q1

REPORT INFORMATION
  Report Type: 
  Country: None (occurrence: None)
  Receive Date: 20100111
  Receipt Date: 20100106
  Transmission Date: 20100710
  Serious: Yes (Life-Threatening)
  Sender: FDA-Public Use
  Company Number: B0623916A

PATIENT
  Age: 68 Year
  Sex: Female
  Weight: 107 kg

DRUGS (7)
  1. AMOXICILLIN AND CLAVULANATE POTASSIUM [Suspect]
     Indication: PROPHYLAXIS
     Route: 042
     Dates: start: 20091230, end: 20091230
  2. LANTUS [Concomitant]
  3. METFORMIN [Concomitant]
  4. LEVOTHYROXINE SODIUM [Concomitant]
  5. SIMVASTATIN [Concomitant]
  6. FRUSEMIDE [Concomitant]
  7. SOLPADOL [Concomitant]

REACTIONS (2)
  - BRADYCARDIA [None]
  - CARDIAC ARREST [None]
